FAERS Safety Report 5375531-0 (Version None)
Quarter: 2007Q2

REPORT INFORMATION
  Report Type: 
  Country: None (occurrence: None)
  Receive Date: 20070629
  Receipt Date: 20070619
  Transmission Date: 20071010
  Serious: Yes (Disabling, Other)
  Sender: FDA-Public Use
  Company Number: AU-PFIZER INC-2007050971

PATIENT
  Sex: Female

DRUGS (1)
  1. ZELDOX (CAPSULES) [Suspect]

REACTIONS (4)
  - DEPRESSION [None]
  - FEELING ABNORMAL [None]
  - HYPOMANIA [None]
  - SLEEP DISORDER [None]
